FAERS Safety Report 23145016 (Version 2)
Quarter: 2023Q4

REPORT INFORMATION
  Report Type: Report from Study
  Country: US (occurrence: US)
  Receive Date: 20231103
  Receipt Date: 20231204
  Transmission Date: 20240109
  Serious: Yes (Other)
  Sender: FDA-Public Use
  Company Number: US-BAUSCH-BL-2023-012141

PATIENT
  Age: 58 Year
  Sex: Female

DRUGS (1)
  1. SILIQ [Suspect]
     Active Substance: BRODALUMAB
     Indication: Psoriasis
     Dosage: 210MG/1.5M, INJECT 210MG SUBCUTANEOUSLY AT WEEKS 0,1, AND 2 AS DIRECTED
     Route: 058
     Dates: start: 202306

REACTIONS (4)
  - Swelling [Not Recovered/Not Resolved]
  - Head injury [Not Recovered/Not Resolved]
  - Product use issue [Unknown]
  - Circumstance or information capable of leading to medication error [Unknown]

NARRATIVE: CASE EVENT DATE: 20230101
